FAERS Safety Report 4591184-3 (Version None)
Quarter: 2005Q1

REPORT INFORMATION
  Report Type: 
  Country: None (occurrence: None)
  Receive Date: 20050225
  Receipt Date: 20050211
  Transmission Date: 20050727
  Serious: Yes (Hospitalization)
  Sender: FDA-Public Use
  Company Number: GB-MERCK-0502GBR00121

PATIENT
  Age: 83 Year
  Sex: Female

DRUGS (9)
  1. ACETAMINOPHEN AND DIHYDROCODEINE BITARTRATE [Concomitant]
     Indication: OSTEOPOROSIS
     Route: 048
     Dates: start: 20030101
  2. ACETAMINOPHEN AND DIHYDROCODEINE BITARTRATE [Concomitant]
     Indication: PAIN
     Route: 048
     Dates: start: 20030101
  3. ALBUTEROL [Concomitant]
     Indication: ASTHMA
     Route: 055
  4. LISINOPRIL [Concomitant]
     Indication: HYPERTENSION
     Route: 048
  5. LANSOPRAZOLE [Concomitant]
     Route: 048
     Dates: start: 20040101
  6. FOSAMAX [Suspect]
     Indication: OSTEOPOROSIS
     Route: 048
     Dates: start: 20031215, end: 20050119
  7. ROFECOXIB [Suspect]
     Route: 048
     Dates: end: 20040301
  8. BECLOMETHASONE DIPROPIONATE [Concomitant]
     Indication: ASTHMA
     Route: 055
  9. CALCIUM CARBONATE AND CHOLECALCIFEROL [Concomitant]
     Indication: OSTEOPOROSIS
     Route: 048
     Dates: start: 20030101

REACTIONS (4)
  - FAECES DISCOLOURED [None]
  - GASTRIC ULCER HAEMORRHAGE [None]
  - HAEMATEMESIS [None]
  - HAEMOGLOBIN DECREASED [None]
